FAERS Safety Report 15515642 (Version 3)
Quarter: 2018Q4

REPORT INFORMATION
  Report Type: Not Available
  Country: US (occurrence: US)
  Receive Date: 20181017
  Receipt Date: 20181211
  Transmission Date: 20190205
  Serious: No
  Sender: FDA-Public Use
  Company Number: US-NEUROCRINE BIOSCIENCES INC.-2018NBI02990

PATIENT
  Sex: Female

DRUGS (7)
  1. INGREZZA [Suspect]
     Active Substance: VALBENAZINE
     Indication: TARDIVE DYSKINESIA
     Route: 048
     Dates: start: 20171109, end: 20171116
  2. INGREZZA [Suspect]
     Active Substance: VALBENAZINE
     Dates: start: 20180608, end: 20180615
  3. LEXAPRO [Concomitant]
     Active Substance: ESCITALOPRAM OXALATE
     Indication: DEPRESSION
     Route: 048
  4. INGREZZA [Suspect]
     Active Substance: VALBENAZINE
     Route: 048
     Dates: start: 20171117
  5. TRAZODONE [Concomitant]
     Active Substance: TRAZODONE HYDROCHLORIDE
     Indication: DEPRESSION
     Dosage: AT BEDTIME
     Route: 048
  6. TRAZODONE [Concomitant]
     Active Substance: TRAZODONE HYDROCHLORIDE
     Indication: DYSKINESIA
  7. INGREZZA [Suspect]
     Active Substance: VALBENAZINE
     Dates: start: 20180718

REACTIONS (8)
  - Sedation [Unknown]
  - Drug effect incomplete [None]
  - Impaired quality of life [Unknown]
  - Fatigue [Unknown]
  - Hypotonia [Unknown]
  - Impaired self-care [Unknown]
  - Somnolence [Unknown]
  - Dizziness [Unknown]
